FAERS Safety Report 16054033 (Version 3)
Quarter: 2019Q2

REPORT INFORMATION
  Report Type: Report from Study
  Country: US (occurrence: US)
  Receive Date: 20190308
  Receipt Date: 20190402
  Transmission Date: 20190711
  Serious: Yes (Hospitalization)
  Sender: FDA-Public Use
  Company Number: PHHY2019US052192

PATIENT
  Age: 58 Year
  Sex: Male

DRUGS (17)
  1. DOCUSATE [Concomitant]
     Active Substance: DOCUSATE
     Indication: CONSTIPATION
     Dosage: 200 MG, BID
     Route: 048
     Dates: start: 20141013
  2. COUMADIN [Suspect]
     Active Substance: WARFARIN SODIUM
     Dosage: 3 MG, QD
     Route: 048
     Dates: start: 20190220
  3. AFINITOR [Suspect]
     Active Substance: EVEROLIMUS
     Indication: METASTATIC RENAL CELL CARCINOMA
     Dosage: 10 MG, QD
     Route: 048
     Dates: start: 20181227
  4. FENTANYL. [Concomitant]
     Active Substance: FENTANYL
     Indication: PAIN
     Dosage: 75 MCG, 1 IN 3 DAY
     Route: 065
     Dates: start: 20170207
  5. HYDRALAZINE [Concomitant]
     Active Substance: HYDRALAZINE HYDROCHLORIDE
     Indication: HYPERTENSION
     Dosage: 40 MG, QD
     Route: 048
     Dates: start: 20160412
  6. ACETAMINOPHEN. [Concomitant]
     Active Substance: ACETAMINOPHEN
     Indication: PAIN
     Route: 048
  7. CYCLOBENZAPRINE. [Concomitant]
     Active Substance: CYCLOBENZAPRINE
     Indication: PAIN
     Dosage: 10 MG, PRN
     Route: 065
     Dates: start: 20180510
  8. AMLODIPINE [Concomitant]
     Active Substance: AMLODIPINE BESYLATE
     Indication: HYPERTENSION
     Route: 048
  9. SYNTHROID [Concomitant]
     Active Substance: LEVOTHYROXINE SODIUM
     Indication: HYPOTHYROIDISM
     Dosage: 300 UG, QD
     Route: 048
     Dates: start: 20110602
  10. DIAZEPAM. [Concomitant]
     Active Substance: DIAZEPAM
     Indication: PAIN
     Dosage: 5 MG, PRN
     Route: 048
     Dates: start: 20090414
  11. GABAPENTIN. [Concomitant]
     Active Substance: GABAPENTIN
     Indication: NEUROPATHY PERIPHERAL
     Dosage: 1800 MG, QD
     Route: 048
     Dates: start: 20170612
  12. OXYCODONE [Concomitant]
     Active Substance: OXYCODONE
     Indication: PRODUCT USED FOR UNKNOWN INDICATION
     Dosage: 10 MG, PRN
     Route: 048
     Dates: start: 20141020
  13. DICLOFENAC [Concomitant]
     Active Substance: DICLOFENAC
     Indication: PAIN
     Dosage: 1 %, PRN
     Route: 061
     Dates: start: 20170816
  14. FENTANYL. [Concomitant]
     Active Substance: FENTANYL
     Indication: UPPER GASTROINTESTINAL HAEMORRHAGE
     Dosage: 50 UG, UNK
     Route: 065
     Dates: start: 20190219
  15. COUMADIN [Suspect]
     Active Substance: WARFARIN SODIUM
     Indication: VASCULAR STENT INSERTION
     Dosage: 5 MG, QD
     Route: 048
     Dates: start: 20141023
  16. BUSPIRONE [Concomitant]
     Active Substance: BUSPIRONE HYDROCHLORIDE
     Indication: ANXIETY
     Dosage: 20 MG, BID
     Route: 048
     Dates: start: 20180227
  17. COMPAZINE [Concomitant]
     Active Substance: PROCHLORPERAZINE MALEATE
     Indication: NAUSEA
     Dosage: 10 MG, PRN
     Route: 048
     Dates: start: 20151228

REACTIONS (15)
  - Upper gastrointestinal haemorrhage [Not Recovered/Not Resolved]
  - Occult blood positive [Unknown]
  - Fatigue [Unknown]
  - Metastases to lung [Unknown]
  - Adrenal mass [Unknown]
  - Lymphadenopathy [Unknown]
  - Faeces discoloured [Unknown]
  - Gastritis erosive [Unknown]
  - Melaena [Unknown]
  - Anaemia [Recovered/Resolved]
  - Oedema peripheral [Unknown]
  - Hepatic lesion [Unknown]
  - Headache [Unknown]
  - Gastric polyps [Unknown]
  - Dyspnoea [Recovering/Resolving]

NARRATIVE: CASE EVENT DATE: 20190218
